FAERS Safety Report 23040629 (Version 1)
Quarter: 2023Q4

REPORT INFORMATION
  Report Type: Spontaneous
  Country: RU (occurrence: None)
  Receive Date: 20231006
  Receipt Date: 20231006
  Transmission Date: 20240110
  Serious: Yes (Hospitalization, Other)
  Sender: FDA-Public Use
  Company Number: RU-ROCHE-3432435

PATIENT
  Sex: Female
  Weight: 48 kg

DRUGS (4)
  1. TRASTUZUMAB [Suspect]
     Active Substance: TRASTUZUMAB
     Indication: Breast cancer
     Dosage: 6 MG/KG - 384 MG IV DRIP ON DAY 1;
     Route: 041
  2. PERTUZUMAB [Suspect]
     Active Substance: PERTUZUMAB
     Indication: Breast cancer
     Route: 041
  3. CARBOPLATIN [Suspect]
     Active Substance: CARBOPLATIN
     Indication: Breast cancer
     Dosage: AUC=4 - 252 MG IV DRIP ON DAY 1.
     Route: 041
  4. DOCETAXEL [Suspect]
     Active Substance: DOCETAXEL
     Indication: Breast cancer
     Dosage: 50 MG/M2 - 81.5 MG, IV DRIP, ON DAY 1;
     Route: 041

REACTIONS (7)
  - Sinus bradycardia [Unknown]
  - Sinus node dysfunction [Unknown]
  - Pulmonary fibrosis [Unknown]
  - Cholecystitis chronic [Unknown]
  - Metastases to lung [Unknown]
  - Gallbladder disorder [Unknown]
  - Uterine leiomyoma [Unknown]
